FAERS Safety Report 9593156 (Version 1)
Quarter: 2013Q4

REPORT INFORMATION
  Report Type: Report from Study
  Country: US (occurrence: US)
  Receive Date: 20131004
  Receipt Date: 20131004
  Transmission Date: 20140711
  Serious: Yes (Hospitalization)
  Sender: FDA-Public Use
  Company Number: US-ALEXION-A201101991

PATIENT
  Sex: Female

DRUGS (8)
  1. ECULIZUMAB [Suspect]
     Indication: HAEMOLYTIC URAEMIC SYNDROME
     Dosage: UNK
     Route: 042
     Dates: start: 20101112
  2. SYNTHROID [Concomitant]
  3. XANAX [Concomitant]
  4. PERCOCET [Concomitant]
  5. CLONIDINE [Concomitant]
  6. HYDRALAZINE [Concomitant]
  7. COREG [Concomitant]
  8. ATENOLOL [Concomitant]

REACTIONS (3)
  - Respiratory disorder [Recovered/Resolved with Sequelae]
  - Respiratory failure [Recovered/Resolved]
  - Staphylococcal infection [Recovered/Resolved]
